FAERS Safety Report 6099708-4 (Version None)
Quarter: 2009Q1

REPORT INFORMATION
  Report Type: 
  Country: None (occurrence: None)
  Receive Date: 20090303
  Receipt Date: 20090219
  Transmission Date: 20090719
  Serious: Yes (Other)
  Sender: FDA-Public Use
  Company Number: US-ROCHE-609740

PATIENT
  Sex: Male
  Weight: 90.7 kg

DRUGS (12)
  1. PEG-INTERFERON A-2A (RO 25-8310) [Suspect]
     Indication: HEPATITIS C
     Dosage: PRE-FILLED SYRINGES
     Route: 065
     Dates: start: 20081214
  2. RIBAVIRIN [Suspect]
     Indication: HEPATITIS C
     Route: 065
  3. RIBAPAK [Suspect]
     Indication: HEPATITIS C
     Route: 065
     Dates: start: 20081214
  4. RIBAPAK [Suspect]
     Dosage: DOSE REDUCED
     Route: 065
     Dates: start: 20090122
  5. RIBAPAK [Suspect]
     Dosage: DOSE REDUCED
     Route: 065
  6. BENZONATATE [Concomitant]
  7. DOXYCYCLINE [Concomitant]
  8. HYDROCHLOROTHIAZIDE [Concomitant]
  9. CENTRUM SILVER [Concomitant]
     Dosage: FREQUENCY REPORTED AS: DAILY
  10. ADVAIR HFA [Concomitant]
  11. ALBUTEROL [Concomitant]
  12. TYLENOL [Concomitant]
     Dosage: PLAIN TWO, 30 MINS BEFORE PEGASYS,

REACTIONS (8)
  - ANGER [None]
  - ANOREXIA [None]
  - BRONCHITIS [None]
  - DEPRESSION [None]
  - FATIGUE [None]
  - PARANOIA [None]
  - RED BLOOD CELL COUNT DECREASED [None]
  - WEIGHT DECREASED [None]
